FAERS Safety Report 6497627-2 (Version None)
Quarter: 2009Q4

REPORT INFORMATION
  Report Type: 
  Country: None (occurrence: None)
  Receive Date: 20091211
  Receipt Date: 20091119
  Transmission Date: 20100525
  Serious: Yes (Life-Threatening, Hospitalization)
  Sender: FDA-Public Use
  Company Number: ADR51192009

PATIENT
  Age: 71 Year
  Sex: Female

DRUGS (5)
  1. RAMIPRIL [Suspect]
     Indication: HYPERTENSION
     Dosage: 5 MG MILLIGRAM(S), 1 IN DAY ORAL
     Route: 048
     Dates: start: 20080601, end: 20090925
  2. SPIRONOLACTONE [Concomitant]
  3. TORSEMIDE [Concomitant]
  4. OBSIDAN [Concomitant]
  5. OMEP [Concomitant]

REACTIONS (4)
  - BRADYCARDIA [None]
  - HYPERKALAEMIA [None]
  - HYPOTENSION [None]
  - RENAL FAILURE ACUTE [None]
